FAERS Safety Report 15682575 (Version 1)
Quarter: 2018Q4

REPORT INFORMATION
  Report Type: Spontaneous
  Country: ES (occurrence: ES)
  Receive Date: 20181203
  Receipt Date: 20181203
  Transmission Date: 20190205
  Serious: Yes (Other)
  Sender: FDA-Public Use
  Company Number: ES-ALLERGAN-1855482US

PATIENT
  Age: 30 Year
  Sex: Female

DRUGS (1)
  1. XYDALBA [Suspect]
     Active Substance: DALBAVANCIN HYDROCHLORIDE
     Indication: PRODUCT USED FOR UNKNOWN INDICATION
     Dosage: UNK
     Route: 065

REACTIONS (4)
  - Respiratory arrest [Unknown]
  - Cardiac arrest [Unknown]
  - Product preparation issue [Unknown]
  - Wrong technique in product usage process [Unknown]
